FAERS Safety Report 15286244 (Version 2)
Quarter: 2018Q4

REPORT INFORMATION
  Report Type: Spontaneous
  Country: PT (occurrence: PT)
  Receive Date: 20180816
  Receipt Date: 20181126
  Transmission Date: 20190204
  Serious: Yes (Hospitalization)
  Sender: FDA-Public Use
  Company Number: PT-009507513-1808PRT004706

PATIENT
  Age: 72 Year
  Sex: Male
  Weight: 90 kg

DRUGS (6)
  1. ATORVASTATIN [Concomitant]
     Active Substance: ATORVASTATIN
     Indication: DYSLIPIDAEMIA
     Dosage: 20 MILLIGRAM, QD
     Route: 048
     Dates: start: 20180511, end: 20180708
  2. ALLOPURINOL. [Concomitant]
     Active Substance: ALLOPURINOL
     Indication: HYPERURICAEMIA
     Dosage: 100 MILLIGRAM, QD
     Route: 048
     Dates: start: 20180511
  3. TRAZODONE HYDROCHLORIDE. [Concomitant]
     Active Substance: TRAZODONE HYDROCHLORIDE
     Indication: DELIRIUM
     Dosage: 100 MILLIGRAM, QD
     Route: 048
     Dates: start: 20180519, end: 20180613
  4. VORICONAZOLE. [Concomitant]
     Active Substance: VORICONAZOLE
     Indication: KERATITIS FUNGAL
     Dosage: 200 MILLIGRAM, QD
     Route: 042
     Dates: start: 20180511, end: 20180523
  5. ACYCLOVIR. [Concomitant]
     Active Substance: ACYCLOVIR
     Indication: HERPES OPHTHALMIC
     Dosage: 800 MILLIGRAM, QD
     Route: 048
     Dates: start: 20180511, end: 20180523
  6. NOXAFIL [Suspect]
     Active Substance: POSACONAZOLE
     Indication: KERATITIS FUNGAL
     Dosage: 300 MILLIGRAM, QD
     Route: 048
     Dates: start: 20180523, end: 20180718

REACTIONS (1)
  - Encephalopathy [Unknown]

NARRATIVE: CASE EVENT DATE: 201805
